FAERS Safety Report 10873620 (Version 1)
Quarter: 2015Q1

REPORT INFORMATION
  Report Type: Spontaneous
  Country: BR (occurrence: BR)
  Receive Date: 20150227
  Receipt Date: 20150227
  Transmission Date: 20150721
  Serious: Yes (Other)
  Sender: FDA-Public Use
  Company Number: BR-SA-2015SA022296

PATIENT
  Sex: Female
  Weight: 78 kg

DRUGS (6)
  1. APIDRA [Suspect]
     Active Substance: INSULIN GLULISINE
     Indication: TYPE 1 DIABETES MELLITUS
     Dosage: 3 ML.
     Route: 065
     Dates: start: 2006
  2. CLIKSTAR [Concomitant]
     Active Substance: CLIKSTAR
     Indication: DEVICE THERAPY
     Route: 058
     Dates: start: 2014
  3. LANTUS [Suspect]
     Active Substance: INSULIN GLARGINE
     Indication: TYPE 1 DIABETES MELLITUS
     Dosage: IN THE MORNING.
     Route: 058
     Dates: start: 2006
  4. METFORMIN [Concomitant]
     Active Substance: METFORMIN HYDROCHLORIDE
     Indication: BODY FAT DISORDER
     Route: 048
  5. AUTOPEN 24 [Concomitant]
     Active Substance: DEVICE
     Indication: DEVICE THERAPY
  6. LOSARTAN [Concomitant]
     Active Substance: LOSARTAN
     Indication: RENAL DISORDER
     Route: 048

REACTIONS (6)
  - Hepatic steatosis [Unknown]
  - Retinal vascular disorder [Not Recovered/Not Resolved]
  - Vision blurred [Not Recovered/Not Resolved]
  - Visual impairment [Not Recovered/Not Resolved]
  - Condition aggravated [Not Recovered/Not Resolved]
  - Diabetic neuropathy [Unknown]
